FAERS Safety Report 6929259-3 (Version None)
Quarter: 2010Q3

REPORT INFORMATION
  Report Type: 
  Country: None (occurrence: None)
  Receive Date: 20100812
  Receipt Date: 20100801
  Transmission Date: 20110219
  Serious: No
  Sender: FDA-Public Use
  Company Number: SPI201000200

PATIENT
  Age: 57 Year
  Sex: Female

DRUGS (1)
  1. AMITIZA [Suspect]
     Dosage: 8 MCG, ORAL, 24 MCG,  ORAL
     Route: 048
     Dates: start: 20100701, end: 20100701

REACTIONS (2)
  - DYSPNOEA [None]
  - OEDEMA PERIPHERAL [None]
